FAERS Safety Report 8137875-9 (Version None)
Quarter: 2012Q1

REPORT INFORMATION
  Report Type: 
  Country: None (occurrence: None)
  Receive Date: 20120215
  Receipt Date: 20120208
  Transmission Date: 20120608
  Serious: Yes (Hospitalization)
  Sender: FDA-Public Use
  Company Number: US-BAYER-2010-002162

PATIENT
  Age: 33 Year
  Sex: Female
  Weight: 87.982 kg

DRUGS (8)
  1. PREDNISONE TAB [Concomitant]
  2. CYCLOBENZAPRINE [Concomitant]
  3. DROSPIRENONE AND ETHINYL ESTRADIOL [Suspect]
     Dosage: UNK
     Dates: start: 20050101, end: 20100401
  4. MELOXICAM [Concomitant]
  5. PROPOXYPHENE NAPSYLATE W/ ACETAMINOPHEN [Concomitant]
  6. YASMIN [Suspect]
     Dosage: UNK
     Dates: start: 20050101, end: 20100401
  7. TRAMADOL HCL [Concomitant]
  8. DICLOFENAC [Concomitant]

REACTIONS (2)
  - CHOLECYSTITIS CHRONIC [None]
  - GALLBLADDER DISORDER [None]
